FAERS Safety Report 6646137-8 (Version None)
Quarter: 2010Q1

REPORT INFORMATION
  Report Type: 
  Country: None (occurrence: None)
  Receive Date: 20100323
  Receipt Date: 20100315
  Transmission Date: 20100710
  Serious: Yes (Other)
  Sender: FDA-Public Use
  Company Number: US-AMGEN-QUU399877

PATIENT
  Sex: Male

DRUGS (1)
  1. ENBREL [Suspect]
     Indication: PSORIASIS
     Route: 058
     Dates: start: 20060514

REACTIONS (5)
  - BLINDNESS TRANSIENT [None]
  - HEART VALVE INCOMPETENCE [None]
  - HYPOACUSIS [None]
  - PAIN [None]
  - PSORIASIS [None]
